FAERS Safety Report 13855388 (Version 1)
Quarter: 2017Q3

REPORT INFORMATION
  Report Type: Spontaneous
  Country: US (occurrence: US)
  Receive Date: 20170810
  Receipt Date: 20170810
  Transmission Date: 20171127
  Serious: No
  Sender: FDA-Public Use
  Company Number: US-VIFOR (INTERNATIONAL) INC.-VIT-2017-06495

PATIENT
  Sex: Male

DRUGS (19)
  1. TAMSULOSIN HYDROCHLORIDE. [Concomitant]
     Active Substance: TAMSULOSIN HYDROCHLORIDE
  2. ALTABAX [Concomitant]
     Active Substance: RETAPAMULIN
  3. LANTUS [Concomitant]
     Active Substance: INSULIN GLARGINE
  4. PROMETHAZINE HYDROCHLORIDE. [Concomitant]
     Active Substance: PROMETHAZINE HYDROCHLORIDE
  5. VELTASSA [Suspect]
     Active Substance: PATIROMER
     Indication: HYPERKALAEMIA
     Route: 048
     Dates: start: 20161004
  6. SENSIPAR [Concomitant]
     Active Substance: CINACALCET HYDROCHLORIDE
  7. VITAMIN D [Concomitant]
     Active Substance: CHOLECALCIFEROL
  8. NIFEDIPINE. [Concomitant]
     Active Substance: NIFEDIPINE
  9. FLUOXETINE HYDROCHLORIDE. [Concomitant]
     Active Substance: FLUOXETINE HYDROCHLORIDE
  10. NO DRUG NAME [Concomitant]
  11. NORVASC [Concomitant]
     Active Substance: AMLODIPINE BESYLATE
  12. RENVELA [Concomitant]
     Active Substance: SEVELAMER CARBONATE
  13. MECLOZINE HYDROCHLORIDE [Concomitant]
     Active Substance: MECLOZINE DIHYDROCHLORIDE
  14. TETRACYCLINE HYDROCHLORIDE. [Concomitant]
     Active Substance: TETRACYCLINE HYDROCHLORIDE
  15. LABETALOL HYDROCHLORIDE. [Concomitant]
     Active Substance: LABETALOL HYDROCHLORIDE
  16. NEPHRO-VITE RX [Concomitant]
  17. HYDROXYZINE HYDROCHLORIDE. [Concomitant]
     Active Substance: HYDROXYZINE HYDROCHLORIDE
  18. VELTASSA [Suspect]
     Active Substance: PATIROMER
     Route: 048
  19. ACETYLSALICYLIC ACID [Concomitant]
     Active Substance: ASPIRIN

REACTIONS (3)
  - Diarrhoea [Not Recovered/Not Resolved]
  - Inappropriate schedule of drug administration [Unknown]
  - Dizziness [Not Recovered/Not Resolved]
